FAERS Safety Report 21839679 (Version 3)
Quarter: 2023Q1

REPORT INFORMATION
  Report Type: Report from Study
  Country: US (occurrence: US)
  Receive Date: 20230109
  Receipt Date: 20230321
  Transmission Date: 20230418
  Serious: Yes (Hospitalization)
  Sender: FDA-Public Use
  Company Number: US-BoehringerIngelheim-2023-BI-211624

PATIENT
  Age: 67 Year
  Sex: Male

DRUGS (1)
  1. OFEV [Suspect]
     Active Substance: NINTEDANIB
     Indication: Interstitial lung disease
     Route: 048
     Dates: start: 20221215, end: 20230205

REACTIONS (13)
  - Illness [Recovered/Resolved]
  - Haemorrhage [Recovered/Resolved with Sequelae]
  - Oesophageal haemorrhage [Recovered/Resolved]
  - Flatulence [Recovering/Resolving]
  - Fatigue [Recovered/Resolved]
  - Weight decreased [Recovered/Resolved]
  - Muscle atrophy [Unknown]
  - Gastrointestinal pain [Not Recovered/Not Resolved]
  - Diarrhoea [Recovered/Resolved]
  - Haematemesis [Recovered/Resolved]
  - Weight increased [Not Recovered/Not Resolved]
  - Insomnia [Unknown]
  - Diarrhoea [Recovered/Resolved]

NARRATIVE: CASE EVENT DATE: 20221215
